FAERS Safety Report 7038101-4 (Version None)
Quarter: 2010Q4

REPORT INFORMATION
  Report Type: 
  Country: None (occurrence: None)
  Receive Date: 20101011
  Receipt Date: 20101004
  Transmission Date: 20110411
  Serious: Yes (Hospitalization)
  Sender: FDA-Public Use
  Company Number: US-AMGEN-KDL443657

PATIENT
  Sex: Male
  Weight: 69.9 kg

DRUGS (6)
  1. PROCRIT [Suspect]
     Indication: ANAEMIA
     Route: 058
     Dates: start: 20060101
  2. SPIRONOLACTONE [Concomitant]
     Route: 048
     Dates: start: 20040601
  3. METOPROLOL [Concomitant]
     Route: 048
     Dates: start: 20040601
  4. OMEPRAZOLE [Concomitant]
     Route: 048
  5. LANTUS [Concomitant]
     Dates: start: 20040601
  6. NOVOLOG [Concomitant]
     Dates: start: 20040601

REACTIONS (2)
  - CONFUSIONAL STATE [None]
  - OEDEMA PERIPHERAL [None]
